FAERS Safety Report 8848386 (Version 1)
Quarter: 2012Q4

REPORT INFORMATION
  Report Type: 
  Country: US (occurrence: US)
  Receive Date: 20121019
  Receipt Date: 20121019
  Transmission Date: 20130627
  Serious: No
  Sender: FDA-Public Use
  Company Number: US-009507513-1210USA003616

PATIENT
  Sex: Female

DRUGS (1)
  1. JANUVIA [Suspect]

REACTIONS (4)
  - Blood glucose increased [Unknown]
  - Nasal congestion [Unknown]
  - Drug dose omission [Unknown]
  - Wrong drug administered [Unknown]
